FAERS Safety Report 8248995-2 (Version None)
Quarter: 2012Q2

REPORT INFORMATION
  Report Type: 
  Country: None (occurrence: None)
  Receive Date: 20120402
  Receipt Date: 20100126
  Transmission Date: 20120825
  Serious: Yes (Other)
  Sender: FDA-Public Use
  Company Number: BR-BIOGENIDEC-2010BI002889

PATIENT
  Age: 25 Year
  Sex: Female

DRUGS (3)
  1. AVONEX [Suspect]
     Route: 030
     Dates: start: 20120316
  2. AVONEX [Suspect]
     Indication: MULTIPLE SCLEROSIS
     Route: 030
     Dates: start: 20100118, end: 20100124
  3. AVONEX [Suspect]
     Route: 030
     Dates: start: 20100125

REACTIONS (8)
  - SENSORY LOSS [None]
  - INFLUENZA LIKE ILLNESS [None]
  - PYREXIA [None]
  - MUSCULAR WEAKNESS [None]
  - VOMITING [None]
  - PAIN [None]
  - COORDINATION ABNORMAL [None]
  - FALL [None]
